FAERS Safety Report 9190721 (Version 2)
Quarter: 2013Q2

REPORT INFORMATION
  Report Type: Spontaneous
  Country: US (occurrence: None)
  Receive Date: 20120703
  Receipt Date: 20121031
  Transmission Date: 20140414
  Serious: Yes (Other)
  Sender: FDA-Public Use
  Company Number: PHEH2012US008428

PATIENT
  Age: 63 Year
  Sex: Female
  Weight: 68 kg

DRUGS (3)
  1. GILENYA [Suspect]
     Indication: RELAPSING-REMITTING MULTIPLE SCLEROSIS
     Route: 048
     Dates: start: 20120126, end: 20120418
  2. MULTIVITAMINS [Concomitant]
  3. CALCIUM (CALCIUM) [Concomitant]

REACTIONS (4)
  - White blood cell count decreased [None]
  - Red blood cell count decreased [None]
  - Leukopenia [None]
  - Heart rate decreased [None]
